FAERS Safety Report 4489920-X (Version None)
Quarter: 2004Q4

REPORT INFORMATION
  Report Type: 
  Country: None (occurrence: None)
  Receive Date: 20041026
  Receipt Date: 20041012
  Transmission Date: 20050328
  Serious: Yes (Hospitalization)
  Sender: FDA-Public Use
  Company Number: 2004AP05302

PATIENT
  Age: 61 Year
  Sex: Female

DRUGS (8)
  1. PULMICORT [Suspect]
     Indication: ASTHMA
     Dosage: 800 UG DAILY IH
     Route: 055
     Dates: start: 20040306, end: 20040809
  2. ACCOLATE [Concomitant]
  3. EUTENSIN [Concomitant]
  4. GLUCONSAN K [Concomitant]
  5. PARIET [Concomitant]
  6. THEO-DUR [Concomitant]
  7. ACTONEL [Concomitant]
  8. LIVALO [Concomitant]

REACTIONS (3)
  - DISEASE RECURRENCE [None]
  - IMMUNOSUPPRESSION [None]
  - PULMONARY TUBERCULOSIS [None]
